FAERS Safety Report 6873185-5 (Version None)
Quarter: 2010Q3

REPORT INFORMATION
  Report Type: 
  Country: None (occurrence: None)
  Receive Date: 20100723
  Receipt Date: 20081213
  Transmission Date: 20110219
  Serious: No
  Sender: FDA-Public Use
  Company Number: US-PFIZER INC-2008157287

PATIENT
  Sex: Female
  Weight: 90.703 kg

DRUGS (5)
  1. CHANTIX [Suspect]
     Indication: SMOKING CESSATION THERAPY
     Dosage: 1 MG, 2X/DAY
     Dates: start: 20081128
  2. SPIRIVA [Concomitant]
     Dosage: UNK
  3. ADVAIR DISKUS 100/50 [Concomitant]
     Dosage: UNK
  4. LIPITOR [Concomitant]
     Dosage: UNK
  5. DRUG USED IN DIABETES [Concomitant]
     Dosage: UNK

REACTIONS (3)
  - DECREASED APPETITE [None]
  - NAUSEA [None]
  - VOMITING [None]
